FAERS Safety Report 6654544-2 (Version None)
Quarter: 2010Q1

REPORT INFORMATION
  Report Type: 
  Country: None (occurrence: None)
  Receive Date: 20100326
  Receipt Date: 20100315
  Transmission Date: 20100710
  Serious: Yes (Other)
  Sender: FDA-Public Use
  Company Number: US-PFIZER INC-2010033277

PATIENT
  Sex: Female
  Weight: 53.515 kg

DRUGS (4)
  1. GEODON [Suspect]
     Indication: BEHAVIOURAL AND PSYCHIATRIC SYMPTOMS OF DEMENTIA
     Dosage: 80 MG, 2X/DAY
     Route: 048
     Dates: start: 20100201, end: 20100314
  2. NEURONTIN [Concomitant]
     Dosage: 600 MG, 2X/DAY
     Route: 048
  3. ARICEPT [Concomitant]
     Dosage: 10 MG, 1X/DAY
     Route: 048
  4. COLACE [Concomitant]
     Dosage: 100 MG, 2X/DAY
     Route: 048

REACTIONS (5)
  - ALANINE AMINOTRANSFERASE INCREASED [None]
  - ASPARTATE AMINOTRANSFERASE INCREASED [None]
  - BLOOD ALBUMIN DECREASED [None]
  - ELECTROCARDIOGRAM QT PROLONGED [None]
  - HYPOTHERMIA [None]
